FAERS Safety Report 4666416-3 (Version None)
Quarter: 2005Q2

REPORT INFORMATION
  Report Type: 
  Country: None (occurrence: None)
  Receive Date: 20050518
  Receipt Date: 20050503
  Transmission Date: 20051028
  Serious: Yes (Death, Hospitalization, Other)
  Sender: FDA-Public Use
  Company Number: 17783-1

PATIENT
  Age: 75 Year
  Sex: Male
  Weight: 69.8539 kg

DRUGS (6)
  1. LEUCOVORIN CALCIUM [Suspect]
     Indication: BILIARY NEOPLASM
     Dosage: 25 MG/M2, QDX5, IV
     Route: 042
     Dates: start: 20050110
  2. IRON (IRON) [Concomitant]
  3. METOPROLOL TARTRATE [Concomitant]
  4. ASPIRIN [Concomitant]
  5. COMPAZINE [Concomitant]
  6. HEPARIN [Concomitant]

REACTIONS (2)
  - FALL [None]
  - NEUTROPENIC SEPSIS [None]
